FAERS Safety Report 6421199-1 (Version None)
Quarter: 2009Q4

REPORT INFORMATION
  Report Type: 
  Country: None (occurrence: None)
  Receive Date: 20091030
  Receipt Date: 20091021
  Transmission Date: 20100525
  Serious: Yes (Other)
  Sender: FDA-Public Use
  Company Number: JP-ASTRAZENECA-2009SE22973

PATIENT
  Age: 82 Year
  Sex: Female

DRUGS (6)
  1. SEROQUEL [Suspect]
     Indication: SCHIZOPHRENIA
     Route: 048
     Dates: start: 20081201, end: 20091005
  2. RISPERDAL [Suspect]
     Route: 048
     Dates: start: 20081201, end: 20091005
  3. LEVOTOMIN [Suspect]
     Route: 048
     Dates: start: 20090317, end: 20091005
  4. CIBENOL [Concomitant]
     Dates: start: 20081201
  5. ARTIST [Concomitant]
     Route: 048
     Dates: start: 20081201
  6. LASIX [Concomitant]
     Route: 048
     Dates: start: 20081201

REACTIONS (1)
  - THROMBOCYTOPENIA [None]
